FAERS Safety Report 8593900-2 (Version None)
Quarter: 2012Q3

REPORT INFORMATION
  Report Type: 
  Country: None (occurrence: None)
  Receive Date: 20120803
  Receipt Date: 20120803
  Transmission Date: 20120928
  Serious: Yes (Hospitalization)
  Sender: FDA-Public Use
  Company Number: None

PATIENT
  Age: 83 Year
  Sex: Male
  Weight: 92.7 kg

DRUGS (7)
  1. PROSCAR [Concomitant]
  2. FLOMAX [Concomitant]
  3. LASIX [Concomitant]
  4. ZOCOR [Concomitant]
  5. COUMADIN [Suspect]
     Indication: PULMONARY EMBOLISM
     Dosage: 7.5MG QPM PO CHRONIC
     Route: 048
  6. COUMADIN [Suspect]
     Indication: DEEP VEIN THROMBOSIS
     Dosage: 7.5MG QPM PO CHRONIC
     Route: 048
  7. COUMADIN [Suspect]
     Indication: VENA CAVA FILTER INSERTION
     Dosage: 7.5MG QPM PO CHRONIC
     Route: 048

REACTIONS (4)
  - HYPERNATRAEMIA [None]
  - ILEUS [None]
  - SUBDURAL HAEMATOMA [None]
  - CONVULSION [None]
